FAERS Safety Report 12860372 (Version 1)
Quarter: 2016Q4

REPORT INFORMATION
  Report Type: Spontaneous
  Country: US (occurrence: US)
  Receive Date: 20161019
  Receipt Date: 20161019
  Transmission Date: 20170207
  Serious: Yes (Other)
  Sender: FDA-Public Use
  Company Number: US-LUPIN PHARMACEUTICALS INC.-E2B_00005917

PATIENT
  Age: 77 Year
  Sex: Female
  Weight: 63.56 kg

DRUGS (1)
  1. LISINOPRIL AND HYDROCHLOROTHIAZIDE [Suspect]
     Active Substance: HYDROCHLOROTHIAZIDE\LISINOPRIL
     Dosage: 20/12.5 MG
     Route: 048
     Dates: start: 20160717

REACTIONS (3)
  - Blood pressure inadequately controlled [Not Recovered/Not Resolved]
  - Drug ineffective [Unknown]
  - Product colour issue [Unknown]

NARRATIVE: CASE EVENT DATE: 20160713
